FAERS Safety Report 10889305 (Version 1)
Quarter: 2015Q1

REPORT INFORMATION
  Report Type: Spontaneous
  Country: MY (occurrence: MY)
  Receive Date: 20150305
  Receipt Date: 20150305
  Transmission Date: 20150721
  Serious: Yes (Hospitalization)
  Sender: FDA-Public Use
  Company Number: MY-MYLANLABS-2015M1006575

PATIENT

DRUGS (1)
  1. MORPHINE [Suspect]
     Active Substance: MORPHINE
     Dosage: CONCENTRATION: 1 MG/ML
     Route: 008

REACTIONS (3)
  - Overdose [Unknown]
  - Drug administration error [Unknown]
  - Respiratory depression [Recovered/Resolved]
